FAERS Safety Report 14363787 (Version 4)
Quarter: 2019Q1

REPORT INFORMATION
  Report Type: Spontaneous
  Country: US (occurrence: US)
  Receive Date: 20180108
  Receipt Date: 20190124
  Transmission Date: 20190417
  Serious: No
  Sender: FDA-Public Use
  Company Number: US-STRONGBRIDGE BIOPHARMA-2017-STR-000217

PATIENT

DRUGS (6)
  1. KEVEYIS [Suspect]
     Active Substance: DICHLORPHENAMIDE
     Dosage: 2 PILLS PER DAY
     Route: 048
     Dates: start: 201802
  2. PROVIGIL [Concomitant]
     Active Substance: MODAFINIL
     Indication: PRODUCT USED FOR UNKNOWN INDICATION
     Dosage: UNK
  3. KEVEYIS [Suspect]
     Active Substance: DICHLORPHENAMIDE
     Indication: FAMILIAL PERIODIC PARALYSIS
     Dosage: UNK
     Route: 048
     Dates: start: 20171229
  4. KEVEYIS [Suspect]
     Active Substance: DICHLORPHENAMIDE
     Dosage: 3 PILLS PER DAY
     Route: 048
  5. KEVEYIS [Suspect]
     Active Substance: DICHLORPHENAMIDE
     Dosage: 1 TABLET QAM AND 1/2 TABLET QPM OCCASIONALLY
     Route: 048
  6. KEVEYIS [Suspect]
     Active Substance: DICHLORPHENAMIDE
     Dosage: 1 TABLET TWICE DAILY
     Route: 048

REACTIONS (11)
  - Confusional state [Unknown]
  - Weight decreased [Unknown]
  - Intentional product use issue [Unknown]
  - Paraesthesia [Not Recovered/Not Resolved]
  - Confusional state [Not Recovered/Not Resolved]
  - Feeling abnormal [Not Recovered/Not Resolved]
  - Underdose [Not Recovered/Not Resolved]
  - Paraesthesia [Not Recovered/Not Resolved]
  - Tinnitus [Not Recovered/Not Resolved]
  - Dysgeusia [Not Recovered/Not Resolved]
  - Dysgeusia [Not Recovered/Not Resolved]

NARRATIVE: CASE EVENT DATE: 20171228
